FAERS Safety Report 4440724-3 (Version None)
Quarter: 2004Q3

REPORT INFORMATION
  Report Type: 
  Country: None (occurrence: None)
  Receive Date: 20040728
  Receipt Date: 20040310
  Transmission Date: 20050211
  Serious: No
  Sender: FDA-Public Use
  Company Number: USA040361715

PATIENT
  Age: 41 Year
  Sex: Male

DRUGS (1)
  1. STRATTERA [Suspect]
     Indication: ATTENTION DEFICIT/HYPERACTIVITY DISORDER
     Dosage: 100 MG DAY
     Dates: start: 20031201

REACTIONS (10)
  - COMMUNICATION DISORDER [None]
  - CONSTIPATION [None]
  - DRY MOUTH [None]
  - ERECTILE DYSFUNCTION [None]
  - HEART RATE INCREASED [None]
  - INSOMNIA [None]
  - LIBIDO INCREASED [None]
  - ORGASMIC SENSATION DECREASED [None]
  - PREMATURE EJACULATION [None]
  - SEXUAL DYSFUNCTION [None]
